FAERS Safety Report 9271483 (Version 5)
Quarter: 2013Q4

REPORT INFORMATION
  Report Type: Spontaneous
  Country: US (occurrence: US)
  Receive Date: 20130506
  Receipt Date: 20131028
  Transmission Date: 20140711
  Serious: No
  Sender: FDA-Public Use
  Company Number: US-PFIZER INC-2013137013

PATIENT
  Age: 44 Year
  Sex: Female
  Weight: 58.5 kg

DRUGS (2)
  1. SUTENT [Suspect]
     Indication: GASTROINTESTINAL STROMAL TUMOUR
     Dosage: 50 MG, CYCLIC (DAILY 28 DAYS ON 14 DAYS OFF)
     Dates: start: 20130415
  2. NAPROXEN [Concomitant]
     Indication: PAIN
     Dosage: UNK

REACTIONS (13)
  - Oral pain [Recovered/Resolved]
  - Dysgeusia [Unknown]
  - Decreased appetite [Unknown]
  - Weight decreased [Unknown]
  - Nausea [Not Recovered/Not Resolved]
  - Limb discomfort [Unknown]
  - Glossodynia [Recovering/Resolving]
  - Fatigue [Unknown]
  - Flatulence [Recovering/Resolving]
  - Abdominal distension [Recovering/Resolving]
  - Contusion [Unknown]
  - Skin haemorrhage [Unknown]
  - Hair colour changes [Unknown]
